FAERS Safety Report 20468530 (Version 1)
Quarter: 2022Q1

REPORT INFORMATION
  Report Type: Spontaneous
  Country: US (occurrence: US)
  Receive Date: 20220214
  Receipt Date: 20220214
  Transmission Date: 20220423
  Serious: No
  Sender: FDA-Public Use
  Company Number: US-TORRENT-00011744

PATIENT
  Sex: Female

DRUGS (1)
  1. MONTELUKAST [Suspect]
     Active Substance: MONTELUKAST SODIUM
     Indication: Hypersensitivity
     Dosage: ONE TABLET ONCE DAILY IN THE EVENING.
     Route: 065
     Dates: start: 202201

REACTIONS (2)
  - Anxiety [Unknown]
  - Intentional dose omission [Unknown]
